FAERS Safety Report 14151710 (Version 1)
Quarter: 2017Q4

REPORT INFORMATION
  Report Type: Spontaneous
  Country: NL (occurrence: NL)
  Receive Date: 20171102
  Receipt Date: 20171102
  Transmission Date: 20180321
  Serious: Yes (Hospitalization)
  Sender: FDA-Public Use
  Company Number: NL-CONCORDIA PHARMACEUTICALS INC.-GSH201711-006163

PATIENT
  Age: 70 Year
  Sex: Male

DRUGS (1)
  1. ALFUZOSIN EXTENDED-RELEASE TABLET 10 MG [Suspect]
     Active Substance: ALFUZOSIN
     Indication: MICTURITION DISORDER
     Route: 048
     Dates: start: 20170910, end: 20170911

REACTIONS (2)
  - Cerebral infarction [Recovered/Resolved with Sequelae]
  - Atrial fibrillation [Recovered/Resolved with Sequelae]

NARRATIVE: CASE EVENT DATE: 20170910
